FAERS Safety Report 8233756-0 (Version None)
Quarter: 2012Q1

REPORT INFORMATION
  Report Type: 
  Country: None (occurrence: None)
  Receive Date: 20120326
  Receipt Date: 20120323
  Transmission Date: 20120608
  Serious: Yes (Hospitalization, Other)
  Sender: FDA-Public Use
  Company Number: PHFR2011IE007014

PATIENT
  Sex: Male
  Weight: 91.8 kg

DRUGS (10)
  1. ASPIRIN [Concomitant]
     Indication: CARDIOVASCULAR DISORDER
     Dosage: 75 MG, MANE
     Route: 048
  2. COVERSYL ARGININE [Concomitant]
     Indication: CARDIOVASCULAR DISORDER
     Dosage: 5 MG, MANE
     Route: 048
  3. ATORVASTATIN [Concomitant]
     Indication: CARDIOVASCULAR DISORDER
     Dosage: 20 MG, QHS
     Route: 048
  4. LAMICTAL [Concomitant]
     Indication: CONVULSION
     Dosage: 50MG MANE 75MG NOCTE
     Route: 048
  5. FLUOXETINE [Concomitant]
     Indication: CARDIOVASCULAR DISORDER
     Dosage: 20 MG, QHS
     Route: 048
  6. MOVIPREP [Concomitant]
     Indication: CONSTIPATION
     Dosage: 1 DF, QID
     Route: 048
  7. ZOLPIDEM TARTRATE [Concomitant]
     Indication: SEDATION
     Dosage: 20 MG, QHS
     Route: 048
  8. CLOZARIL [Suspect]
     Indication: SCHIZOPHRENIA
     Dosage: 200MG MANE 300MG NOCTE
     Route: 048
     Dates: start: 19940905
  9. OMEPRAZOLE [Concomitant]
     Indication: PEPTIC ULCER
     Dosage: 20 MG, MANE
     Route: 048
  10. AKINETON [Concomitant]
     Dosage: 2 MG, TID
     Route: 048

REACTIONS (4)
  - CONVULSION [None]
  - CEREBROVASCULAR DISORDER [None]
  - LOSS OF CONSCIOUSNESS [None]
  - CONFUSIONAL STATE [None]
